FAERS Safety Report 21373709 (Version 2)
Quarter: 2022Q3

REPORT INFORMATION
  Report Type: Report from Study
  Country: AR (occurrence: AR)
  Receive Date: 20220926
  Receipt Date: 20220928
  Transmission Date: 20221027
  Serious: Yes (Hospitalization, Other)
  Sender: FDA-Public Use
  Company Number: AR-NOVARTISPH-NVSC2020AR259946

PATIENT
  Age: 34 Year
  Sex: Female

DRUGS (3)
  1. COSENTYX [Suspect]
     Active Substance: SECUKINUMAB
     Indication: Ankylosing spondylitis
     Dosage: 150 MG, Q2W
     Route: 058
     Dates: start: 20190615
  2. COSENTYX [Suspect]
     Active Substance: SECUKINUMAB
     Indication: Axial spondyloarthritis
     Dosage: 300 MG, QMO
     Route: 058
  3. COSENTYX [Suspect]
     Active Substance: SECUKINUMAB
     Dosage: 300 MG, QMO
     Route: 058
     Dates: start: 20190615

REACTIONS (19)
  - Supraventricular tachycardia [Unknown]
  - Femoral vein perforation [Unknown]
  - Internal haemorrhage [Recovering/Resolving]
  - Thrombosis [Unknown]
  - Abdominal pain [Unknown]
  - Narcolepsy [Unknown]
  - Pyrexia [Recovered/Resolved]
  - Application site bruise [Unknown]
  - Contusion [Unknown]
  - Malaise [Unknown]
  - Back pain [Unknown]
  - Application site haematoma [Unknown]
  - Spinal pain [Not Recovered/Not Resolved]
  - Dysstasia [Unknown]
  - Hypertension [Unknown]
  - Body temperature increased [Unknown]
  - Pain in extremity [Unknown]
  - Somnolence [Unknown]
  - Off label use [Not Recovered/Not Resolved]

NARRATIVE: CASE EVENT DATE: 20190615
